FAERS Safety Report 6402598-0 (Version None)
Quarter: 2009Q4

REPORT INFORMATION
  Report Type: 
  Country: None (occurrence: None)
  Receive Date: 20091009
  Receipt Date: 20090924
  Transmission Date: 20100525
  Serious: Yes (Death, Life-Threatening, Hospitalization, Other)
  Sender: FDA-Public Use
  Company Number: AUR-APL-2009-00734

PATIENT
  Age: 71 Year
  Sex: Female

DRUGS (7)
  1. METFORMIN HCL [Suspect]
     Dosage: 500MG - DAILY -
  2. CAPECITABINE [Suspect]
     Indication: GASTRIC CANCER
     Dosage: ORAL
     Route: 048
  3. ETAMSYLATE [Suspect]
     Indication: GASTROINTESTINAL HAEMORRHAGE
     Dosage: 500MG - QID -
  4. LANSOPRAZOLE [Suspect]
     Dosage: 30MG - BID -
  5. ACETAMINOPHEN [Suspect]
     Dosage: 1G - QID -
  6. TRANEXAMIC ACID [Suspect]
     Indication: GASTROINTESTINAL HAEMORRHAGE
     Dosage: 1G - TID - ORAL
     Route: 048
  7. THEOPHYLLINE [Suspect]
     Dosage: 200MG - BID -

REACTIONS (8)
  - ANAEMIA [None]
  - CONDITION AGGRAVATED [None]
  - DYSPNOEA [None]
  - GASTRIC CANCER [None]
  - MALIGNANT NEOPLASM PROGRESSION [None]
  - MELAENA [None]
  - RECTAL HAEMORRHAGE [None]
  - SEPSIS [None]
